FAERS Safety Report 6208639-8 (Version None)
Quarter: 2009Q2

REPORT INFORMATION
  Report Type: 
  Country: None (occurrence: None)
  Receive Date: 20090529
  Receipt Date: 20090521
  Transmission Date: 20091009
  Serious: Yes (Hospitalization, Other)
  Sender: FDA-Public Use
  Company Number: JP-PFIZER INC-2009205092

PATIENT
  Age: 43 Year

DRUGS (2)
  1. METHYLPREDNISOLONE SODIUM SUCCINATE [Suspect]
     Indication: MULTIPLE SCLEROSIS
  2. INTERFERON BETA [Suspect]
     Indication: MULTIPLE SCLEROSIS

REACTIONS (3)
  - AUTOIMMUNE HEPATITIS [None]
  - HEPATITIS [None]
  - HEPATITIS INFECTIOUS MONONUCLEOSIS [None]
